FAERS Safety Report 4478256-9 (Version None)
Quarter: 2004Q4

REPORT INFORMATION
  Report Type: 
  Country: None (occurrence: None)
  Receive Date: 20041019
  Receipt Date: 20041008
  Transmission Date: 20050328
  Serious: Yes (Hospitalization)
  Sender: FDA-Public Use
  Company Number: PHRM2004FR03085

PATIENT
  Age: 38 Year
  Sex: Male

DRUGS (1)
  1. TEGRETOL [Suspect]
     Indication: EPILEPSY
     Dosage: 800 MG/DAY
     Route: 048
     Dates: start: 19970101

REACTIONS (4)
  - ABDOMINAL PAIN [None]
  - CHOLECYSTITIS [None]
  - CHOLELITHIASIS [None]
  - SURGERY [None]
